FAERS Safety Report 15316363 (Version 1)
Quarter: 2018Q3

REPORT INFORMATION
  Report Type: Spontaneous
  Country: NL (occurrence: NL)
  Receive Date: 20180824
  Receipt Date: 20180824
  Transmission Date: 20181010
  Serious: Yes (Other)
  Sender: FDA-Public Use
  Company Number: NL-SA-2018SA230808

PATIENT
  Sex: Male

DRUGS (1)
  1. AUBAGIO [Suspect]
     Active Substance: TERIFLUNOMIDE
     Dosage: UNK
     Dates: start: 201807

REACTIONS (8)
  - Nausea [Unknown]
  - Urinary retention [Unknown]
  - Influenza like illness [Unknown]
  - Headache [Unknown]
  - Myalgia [Unknown]
  - Paraesthesia [Unknown]
  - Diarrhoea [Unknown]
  - Crying [Unknown]

NARRATIVE: CASE EVENT DATE: 2018
